FAERS Safety Report 7883684-5 (Version None)
Quarter: 2011Q4

REPORT INFORMATION
  Report Type: 
  Country: None (occurrence: None)
  Receive Date: 20111102
  Receipt Date: 20111027
  Transmission Date: 20120403
  Serious: Yes (Life-Threatening, Hospitalization)
  Sender: FDA-Public Use
  Company Number: SK-PFIZER INC-2011263290

PATIENT
  Age: 47 Year
  Sex: Female
  Weight: 65 kg

DRUGS (6)
  1. COLIMYCINE [Concomitant]
     Dosage: 3000000 IU, UNK
     Route: 051
  2. HERPESIN [Concomitant]
     Dosage: 500 MG, UNK
  3. TIENAM [Suspect]
     Indication: SEPSIS
     Dates: start: 20110922, end: 20110925
  4. SANDIMMUNE [Concomitant]
     Dosage: 350 MG, UNK
  5. VFEND [Suspect]
     Indication: FUNGAL INFECTION
     Dates: start: 20110922, end: 20110924
  6. MICAFUNGIN [Concomitant]
     Dosage: 100 MG, UNK

REACTIONS (3)
  - CONVULSION [None]
  - SOPOR [None]
  - ANXIETY [None]
